FAERS Safety Report 9204113 (Version 1)
Quarter: 2013Q2

REPORT INFORMATION
  Report Type: Spontaneous
  Country: CH (occurrence: CH)
  Receive Date: 20130402
  Receipt Date: 20130402
  Transmission Date: 20140414
  Serious: Yes (Other)
  Sender: FDA-Public Use
  Company Number: CH-PFIZER INC-2013101368

PATIENT
  Age: 38 Year
  Sex: Female

DRUGS (3)
  1. XANAX [Suspect]
     Indication: SCHIZOPHRENIA, PARANOID TYPE
     Dosage: 1 MG, 1X/DAY
     Dates: start: 2012
  2. XANAX [Suspect]
     Dosage: 0.5 MG, 1X/DAY
  3. DOSTINEX [Suspect]
     Indication: PROLACTINOMA
     Dosage: UNK
     Dates: start: 2012, end: 20121223

REACTIONS (1)
  - Abortion spontaneous [Recovered/Resolved]
